FAERS Safety Report 7648734-X (Version None)
Quarter: 2011Q3

REPORT INFORMATION
  Report Type: 
  Country: None (occurrence: None)
  Receive Date: 20110801
  Receipt Date: 20110722
  Transmission Date: 20111222
  Serious: Yes (Hospitalization, Other)
  Sender: FDA-Public Use
  Company Number: PHHY2011FR61889

PATIENT
  Sex: Female
  Weight: 13.5 kg

DRUGS (3)
  1. SIMULECT [Suspect]
     Indication: RENAL TRANSPLANT
     Dosage: 20 MG,
     Route: 042
     Dates: start: 20110501
  2. SIMULECT [Suspect]
     Dosage: 10 MG, UNK
     Route: 042
     Dates: start: 20110612
  3. SOMATROPIN RDNA [Concomitant]
     Dosage: 0.6 MG, UNK
     Dates: start: 20101001

REACTIONS (8)
  - ANAPHYLACTIC SHOCK [None]
  - CYANOSIS [None]
  - HISTAMINE LEVEL INCREASED [None]
  - CARDIAC ARREST [None]
  - DYSPNOEA [None]
  - LARYNGEAL OEDEMA [None]
  - BRONCHOSPASM [None]
  - HYPOTENSION [None]
